FAERS Safety Report 8904618 (Version 1)
Quarter: 2012Q4

REPORT INFORMATION
  Report Type: 
  Country: US (occurrence: US)
  Receive Date: 20121113
  Receipt Date: 20121113
  Transmission Date: 20130627
  Serious: Yes (Other)
  Sender: FDA-Public Use
  Company Number: PHEH2012US022104

PATIENT
  Sex: Male

DRUGS (7)
  1. GILENYA [Suspect]
     Indication: MULTIPLE SCLEROSIS
     Dosage: 0.5 mg, QD
     Route: 048
     Dates: start: 20101230
  2. LISINOPRIL [Concomitant]
     Dosage: 10 mg, UNK
  3. GABAPENTIN [Concomitant]
     Dosage: 800 mg, UNK
  4. TIZANIDINE [Concomitant]
     Dosage: 4 mg, UNK
  5. TAMSULOSIN [Concomitant]
     Dosage: 0.4 mg, UNK
  6. VITAMIN D [Concomitant]
  7. PRILOSEC [Concomitant]
     Indication: GASTROOESOPHAGEAL REFLUX DISEASE
     Dosage: 20 mg/day

REACTIONS (5)
  - Neurogenic bladder [Unknown]
  - Bladder outlet obstruction [Unknown]
  - Pollakiuria [Unknown]
  - Pain in extremity [Unknown]
  - Muscle spasms [Unknown]
